FAERS Safety Report 4508891-0 (Version None)
Quarter: 2004Q4

REPORT INFORMATION
  Report Type: 
  Country: None (occurrence: None)
  Receive Date: 20041118
  Receipt Date: 20041109
  Transmission Date: 20050328
  Serious: Yes (Hospitalization)
  Sender: FDA-Public Use
  Company Number: 2002-02-2095

PATIENT
  Age: 42 Year
  Sex: Male
  Weight: 73 kg

DRUGS (8)
  1. VIRAFERONPEG [Suspect]
     Indication: HEPATITIS C
     Route: 065
     Dates: start: 20010401, end: 20011101
  2. REBETOL [Suspect]
     Indication: HEPATITIS C
     Dosage: UNK-1000 MG; ORAL (SEE IMAGE)
     Route: 048
     Dates: start: 20010401, end: 20011101
  3. REBETOL [Suspect]
     Indication: HEPATITIS C
     Dosage: UNK-1000 MG; ORAL (SEE IMAGE)
     Route: 048
     Dates: start: 20030921, end: 20031021
  4. REBETOL [Suspect]
     Indication: HEPATITIS C
     Dosage: UNK-1000 MG; ORAL (SEE IMAGE)
     Route: 048
     Dates: start: 20010401, end: 20040901
  5. REBETOL [Suspect]
     Indication: HEPATITIS C
     Dosage: UNK-1000 MG; ORAL (SEE IMAGE)
     Route: 048
     Dates: start: 20040901, end: 20040921
  6. PEGASYS [Suspect]
     Indication: HEPATITIS C
     Dosage: 180 MCG, QWK; UNKNOWN
     Route: 065
     Dates: start: 20030921, end: 20031021
  7. BENZODIAZEPINE (NOS) [Suspect]
     Indication: DRUG USE FOR UNKNOWN INDICATION
     Dosage: UNKNOWN
     Route: 065
  8. MANTADIX [Concomitant]
     Route: 065

REACTIONS (25)
  - ABNORMAL BEHAVIOUR [None]
  - ANOREXIA [None]
  - ARTHRITIS [None]
  - C-REACTIVE PROTEIN INCREASED [None]
  - CONDITION AGGRAVATED [None]
  - CONVULSION [None]
  - DEPRESSIVE SYMPTOM [None]
  - DIARRHOEA [None]
  - DISEASE RECURRENCE [None]
  - DRUG WITHDRAWAL SYNDROME [None]
  - HEPATIC STEATOSIS [None]
  - HEPATITIS C [None]
  - HEPATOMEGALY [None]
  - IRRITABILITY [None]
  - JOINT SWELLING [None]
  - MUSCULOSKELETAL PAIN [None]
  - NAIL PSORIASIS [None]
  - NERVOUSNESS [None]
  - OEDEMA PERIPHERAL [None]
  - ONYCHOMADESIS [None]
  - PAIN [None]
  - PSORIASIS [None]
  - PSORIATIC ARTHROPATHY [None]
  - SKIN LESION [None]
  - TREATMENT NONCOMPLIANCE [None]
